FAERS Safety Report 9304805 (Version 1)
Quarter: 2013Q2

REPORT INFORMATION
  Report Type: Spontaneous
  Country: US (occurrence: None)
  Receive Date: 20130521
  Receipt Date: 20130521
  Transmission Date: 20140414
  Serious: Yes (Disabling)
  Sender: FDA-Public Use
  Company Number: None

PATIENT
  Age: 70 Year
  Sex: Female
  Weight: 45.5 kg

DRUGS (1)
  1. CALCIUM MAGNESIUM ZINC [Suspect]
     Indication: BLOOD CALCIUM DECREASED
     Dosage: ONE CAPLET
     Route: 048

REACTIONS (3)
  - Gait disturbance [None]
  - Muscle spasms [None]
  - Product contamination physical [None]
